FAERS Safety Report 5521589-5 (Version None)
Quarter: 2007Q4

REPORT INFORMATION
  Report Type: 
  Country: None (occurrence: None)
  Receive Date: 20071115
  Receipt Date: 20071031
  Transmission Date: 20080405
  Serious: Yes (Hospitalization)
  Sender: FDA-Public Use
  Company Number: 150004L07JPN

PATIENT
  Age: 31 Year
  Sex: Female

DRUGS (4)
  1. CHORIONIC GONADORTOPIN INJ [Suspect]
     Dosage: 10000 IU, 5000 IU, 3 IN
  2. MENOTROPINS [Suspect]
     Dosage: 150 IU, 1 IN 1 DAYS, INTRAMUSCULAR
     Route: 030
  3. GONADOTROPIN-RELEASING HORMONE (GONADOTROPIN-RELEASING HORMONES) [Concomitant]
  4. BUSERELIN (BUSERELIN ACETATE) [Concomitant]

REACTIONS (6)
  - ACQUIRED HAEMOPHILIA [None]
  - DRUG EXPOSURE DURING PREGNANCY [None]
  - HYPOVOLAEMIC SHOCK [None]
  - OVARIAN HYPERSTIMULATION SYNDROME [None]
  - PREGNANCY [None]
  - PREMATURE LABOUR [None]
